FAERS Safety Report 16965636 (Version 2)
Quarter: 2019Q4

REPORT INFORMATION
  Report Type: Spontaneous
  Country: BR (occurrence: BR)
  Receive Date: 20191028
  Receipt Date: 20191125
  Transmission Date: 20200122
  Serious: Yes (Death, Hospitalization)
  Sender: FDA-Public Use
  Company Number: BR-ASTRAZENECA-2019SF51971

PATIENT
  Age: 33484 Day
  Sex: Female

DRUGS (3)
  1. DIOSMIN [Concomitant]
     Active Substance: DIOSMIN
     Indication: HYPERTENSION
  2. DIOVAN [Concomitant]
     Active Substance: VALSARTAN
     Indication: HYPERTENSION
  3. SEROQUEL [Suspect]
     Active Substance: QUETIAPINE FUMARATE
     Dosage: 50.0MG UNKNOWN
     Route: 048

REACTIONS (3)
  - Hypertension [Fatal]
  - Dementia Alzheimer^s type [Fatal]
  - Septic shock [Fatal]

NARRATIVE: CASE EVENT DATE: 20190921
